FAERS Safety Report 5979560-5 (Version None)
Quarter: 2008Q4

REPORT INFORMATION
  Report Type: 
  Country: None (occurrence: None)
  Receive Date: 20081204
  Receipt Date: 20081125
  Transmission Date: 20090506
  Serious: Yes (Hospitalization)
  Sender: FDA-Public Use
  Company Number: FR-ELI_LILLY_AND_COMPANY-FR200811005552

PATIENT
  Sex: Female

DRUGS (6)
  1. ZYPREXA [Suspect]
     Indication: SCHIZOPHRENIA
     Dosage: 5 MG, DAILY (1/D)
     Route: 048
     Dates: start: 20080929, end: 20081008
  2. NOCTAMIDE [Concomitant]
     Indication: INSOMNIA
     Dosage: 1 MG, DAILY (1/D)
     Route: 048
     Dates: start: 20081003, end: 20081008
  3. ARICEPT [Concomitant]
     Indication: DEMENTIA ALZHEIMER'S TYPE
     Dosage: 5 MG, DAILY (1/D)
     Route: 048
     Dates: start: 20081004, end: 20081008
  4. STABLON [Concomitant]
     Indication: DEPRESSION
     Route: 048
     Dates: end: 20081008
  5. ZOLPIDEM [Concomitant]
     Indication: INSOMNIA
     Dosage: 1 D/F, DAILY (1/D)
     Route: 048
     Dates: start: 20081001, end: 20081008
  6. XANAX [Concomitant]
     Indication: ANXIETY
     Dates: end: 20081008

REACTIONS (1)
  - AGRANULOCYTOSIS [None]
